FAERS Safety Report 7661417-5 (Version None)
Quarter: 2011Q3

REPORT INFORMATION
  Report Type: 
  Country: None (occurrence: None)
  Receive Date: 20110805
  Receipt Date: 20101013
  Transmission Date: 20111222
  Serious: No
  Sender: FDA-Public Use
  Company Number: US-ABBOTT-10P-163-0678814-00

PATIENT
  Sex: Male
  Weight: 94.432 kg

DRUGS (10)
  1. FLOMAX [Concomitant]
     Indication: PRODUCT USED FOR UNKNOWN INDICATION
  2. ASPIRIN [Concomitant]
     Indication: PRODUCT USED FOR UNKNOWN INDICATION
  3. TRILIPIX [Concomitant]
     Indication: PRODUCT USED FOR UNKNOWN INDICATION
  4. TRAZODONE HCL [Concomitant]
     Indication: PRODUCT USED FOR UNKNOWN INDICATION
  5. GALANTAMINE HYDROBROMIDE [Concomitant]
     Indication: PRODUCT USED FOR UNKNOWN INDICATION
  6. NIASPAN [Suspect]
     Indication: HYPERLIPIDAEMIA
     Dosage: TOOK 3-500MG TABLETS INSTEAD OF 1
     Dates: start: 20091101
  7. NIASPAN [Suspect]
     Dosage: DAILY AT BEDTIME
     Dates: end: 20100901
  8. NIASPAN [Suspect]
     Dates: start: 20100901
  9. ATENOLOL [Concomitant]
     Indication: PRODUCT USED FOR UNKNOWN INDICATION
  10. LIPITOR [Concomitant]
     Indication: PRODUCT USED FOR UNKNOWN INDICATION

REACTIONS (9)
  - INSOMNIA [None]
  - PALPITATIONS [None]
  - DIZZINESS [None]
  - INCORRECT DOSE ADMINISTERED [None]
  - CHEST PAIN [None]
  - ERYTHEMA [None]
  - PRURITUS [None]
  - BLOOD GLUCOSE INCREASED [None]
  - OVERDOSE [None]
